FAERS Safety Report 21378015 (Version 1)
Quarter: 2022Q3

REPORT INFORMATION
  Report Type: Spontaneous
  Country: DE (occurrence: DE)
  Receive Date: 20220926
  Receipt Date: 20220926
  Transmission Date: 20221026
  Serious: Yes (Hospitalization, Other)
  Sender: FDA-Public Use
  Company Number: DE-009507513-2209DEU005486

PATIENT
  Sex: Male
  Weight: 6.3 kg

DRUGS (2)
  1. CASPOFUNGIN ACETATE [Suspect]
     Active Substance: CASPOFUNGIN ACETATE
     Indication: Prophylaxis
     Dosage: 16 MILLIGRAM, QD
     Route: 042
     Dates: start: 20190816, end: 20190819
  2. CEFOTAXIME [Concomitant]
     Active Substance: CEFOTAXIME SODIUM
     Indication: Prophylaxis
     Dosage: 90 MILLIGRAM, BID
     Route: 042
     Dates: start: 20190816, end: 20190817

REACTIONS (2)
  - Peritonitis [Recovered/Resolved]
  - Product use in unapproved indication [Unknown]

NARRATIVE: CASE EVENT DATE: 20190816
